FAERS Safety Report 16242956 (Version 1)
Quarter: 2019Q2

REPORT INFORMATION
  Report Type: Spontaneous
  Country: US (occurrence: US)
  Receive Date: 20190322
  Receipt Date: 20190322
  Transmission Date: 20190713
  Serious: Yes (Other)
  Sender: FDA-Public Use
  Company Number: None

PATIENT
  Age: 67 Year
  Sex: Female

DRUGS (1)
  1. BUPROPION SR 150MG [Suspect]
     Active Substance: BUPROPION
     Indication: PRODUCT USED FOR UNKNOWN INDICATION
     Route: 048
     Dates: start: 20190110, end: 20190117

REACTIONS (4)
  - Product substitution issue [None]
  - Malaise [None]
  - Product odour abnormal [None]
  - Abdominal discomfort [None]

NARRATIVE: CASE EVENT DATE: 20190119
